FAERS Safety Report 4346712-X (Version None)
Quarter: 2004Q1

REPORT INFORMATION
  Report Type: 
  Country: None (occurrence: None)
  Receive Date: 20040329
  Receipt Date: 20031203
  Transmission Date: 20041129
  Serious: No
  Sender: FDA-Public Use
  Company Number: USA031253867

PATIENT
  Age: 19 Year
  Sex: Female
  Weight: 109 kg

DRUGS (1)
  1. STRATTERA [Suspect]
     Dosage: 80 MG/DAY
     Dates: start: 20030101

REACTIONS (3)
  - DRUG EFFECT DECREASED [None]
  - GINGIVAL SWELLING [None]
  - WEIGHT DECREASED [None]
